FAERS Safety Report 16688038 (Version 1)
Quarter: 2019Q3

REPORT INFORMATION
  Report Type: Spontaneous
  Country: US (occurrence: US)
  Receive Date: 20190624
  Receipt Date: 20190624
  Transmission Date: 20191004
  Serious: Yes (Other)
  Sender: FDA-Public Use
  Company Number: None

PATIENT
  Age: 39 Year
  Sex: Female
  Weight: 83.91 kg

DRUGS (6)
  1. L-THYROXINE [Concomitant]
     Active Substance: LEVOTHYROXINE
  2. LETROZOLE. [Concomitant]
     Active Substance: LETROZOLE
  3. LEXAPRO [Suspect]
     Active Substance: ESCITALOPRAM OXALATE
  4. LITHIUM. [Suspect]
     Active Substance: LITHIUM
  5. LATUDA [Suspect]
     Active Substance: LURASIDONE HYDROCHLORIDE
  6. BUSPAR [Suspect]
     Active Substance: BUSPIRONE HYDROCHLORIDE

REACTIONS (1)
  - Abortion spontaneous [None]

NARRATIVE: CASE EVENT DATE: 20180301
